FAERS Safety Report 11301912 (Version 1)
Quarter: 2015Q3

REPORT INFORMATION
  Report Type: Spontaneous
  Country: US (occurrence: US)
  Receive Date: 20150722
  Receipt Date: 20150722
  Transmission Date: 20151125
  Serious: No
  Sender: FDA-Public Use
  Company Number: US-ELI_LILLY_AND_COMPANY-USA020211522

PATIENT
  Age: 57 Year
  Sex: Female
  Weight: 68.18 kg

DRUGS (2)
  1. EVISTA [Suspect]
     Active Substance: RALOXIFENE HYDROCHLORIDE
     Indication: OSTEOPOROSIS
     Dosage: 60 MG, DAILY (1/D)
     Dates: start: 20020211, end: 20020217
  2. EVISTA [Suspect]
     Active Substance: RALOXIFENE HYDROCHLORIDE
     Dosage: 60 MG, UNK
     Dates: end: 20071019

REACTIONS (7)
  - Dental implantation [Not Recovered/Not Resolved]
  - Bone loss [Unknown]
  - Drug ineffective [Unknown]
  - Implant site infection [Not Recovered/Not Resolved]
  - Implant site swelling [Not Recovered/Not Resolved]
  - Hypertension [Unknown]
  - Medical device removal [Unknown]

NARRATIVE: CASE EVENT DATE: 20020217
